FAERS Safety Report 4742231-7 (Version None)
Quarter: 2005Q3

REPORT INFORMATION
  Report Type: 
  Country: None (occurrence: None)
  Receive Date: 20050811
  Receipt Date: 20050324
  Transmission Date: 20060218
  Serious: No
  Sender: FDA-Public Use
  Company Number: US-GLAXOSMITHKLINE-A0551149A

PATIENT
  Age: 57 Year
  Sex: Female

DRUGS (5)
  1. PAXIL CR [Suspect]
     Indication: DEPRESSION
     Dosage: 25MG TWICE PER DAY
     Route: 048
  2. AMITRIPTYLINE [Concomitant]
  3. SEROQUEL [Concomitant]
  4. XANAX [Concomitant]
  5. PERCOCET [Concomitant]

REACTIONS (4)
  - DEPRESSION [None]
  - FLAT AFFECT [None]
  - IRRITABILITY [None]
  - TREMOR [None]
